FAERS Safety Report 8862181 (Version 1)
Quarter: 2012Q4

REPORT INFORMATION
  Report Type: 
  Country: US (occurrence: US)
  Receive Date: 20121026
  Receipt Date: 20121026
  Transmission Date: 20130627
  Serious: Yes (Other)
  Sender: FDA-Public Use
  Company Number: US-PFIZER INC-2012264768

PATIENT
  Sex: Female

DRUGS (2)
  1. ESTRING [Suspect]
     Indication: MENOPAUSAL SYMPTOMS
     Dosage: UNK
     Route: 067
  2. ESTRING [Suspect]
     Indication: OESTROGEN DEFICIENCY

REACTIONS (4)
  - Product quality issue [Unknown]
  - Vaginal laceration [Unknown]
  - Vaginal haemorrhage [Unknown]
  - Vulvovaginal swelling [Unknown]
